FAERS Safety Report 7827418-9 (Version None)
Quarter: 2011Q4

REPORT INFORMATION
  Report Type: 
  Country: None (occurrence: None)
  Receive Date: 20111020
  Receipt Date: 20111013
  Transmission Date: 20120403
  Serious: Yes (Other)
  Sender: FDA-Public Use
  Company Number: GB-JNJFOC-20111001313

PATIENT
  Sex: Male

DRUGS (2)
  1. SIMPONI [Suspect]
     Indication: PRODUCT USED FOR UNKNOWN INDICATION
     Route: 058
     Dates: start: 20110929
  2. SIMPONI [Suspect]
     Route: 058

REACTIONS (3)
  - BLISTER [None]
  - TONGUE BLISTERING [None]
  - TOOTH ABSCESS [None]
